FAERS Safety Report 8389709-5 (Version None)
Quarter: 2012Q2

REPORT INFORMATION
  Report Type: 
  Country: None (occurrence: None)
  Receive Date: 20120523
  Receipt Date: 20120523
  Transmission Date: 20120825
  Serious: Yes (Other)
  Sender: FDA-Public Use
  Company Number: None

PATIENT
  Sex: Female
  Weight: 53.0709 kg

DRUGS (1)
  1. BONIVA [Suspect]
     Indication: OSTEOPOROSIS
     Dates: start: 20120402

REACTIONS (6)
  - ABDOMINAL PAIN UPPER [None]
  - HEADACHE [None]
  - PAIN [None]
  - INFLUENZA LIKE ILLNESS [None]
  - ASTHENIA [None]
  - PYREXIA [None]
